FAERS Safety Report 13718840 (Version 2)
Quarter: 2017Q3

REPORT INFORMATION
  Report Type: Spontaneous
  Country: JP (occurrence: JP)
  Receive Date: 20170705
  Receipt Date: 20170811
  Transmission Date: 20171127
  Serious: Yes (Hospitalization, Other)
  Sender: FDA-Public Use
  Company Number: JP-JNJFOC-20170701182

PATIENT
  Age: 68 Year
  Sex: Female

DRUGS (5)
  1. EDIROL [Concomitant]
     Active Substance: ELDECALCITOL
     Indication: OSTEOPOROSIS
     Dosage: DAILY DOSE 0.75 MG
     Route: 048
     Dates: start: 20170412
  2. XARELTO [Suspect]
     Active Substance: RIVAROXABAN
     Indication: ATRIAL FIBRILLATION
     Route: 048
     Dates: start: 20161229, end: 20170530
  3. VERAPAMIL HYDROCHLORIDE. [Suspect]
     Active Substance: VERAPAMIL HYDROCHLORIDE
     Indication: ATRIAL FIBRILLATION
     Dosage: DAILY DOSE 120 MG
     Route: 048
     Dates: start: 20161220
  4. FAMOTIDINE. [Suspect]
     Active Substance: FAMOTIDINE
     Indication: GASTRITIS
     Dosage: DAILY DOSE 20 MG
     Route: 048
     Dates: start: 20161220
  5. EVISTA [Concomitant]
     Active Substance: RALOXIFENE HYDROCHLORIDE
     Indication: OSTEOPOROSIS
     Dosage: DAILY DOSE 60 MG
     Route: 048
     Dates: start: 20170412

REACTIONS (3)
  - Peripheral swelling [Recovered/Resolved]
  - Gastric haemorrhage [Recovered/Resolved]
  - Gastritis erosive [Recovered/Resolved]

NARRATIVE: CASE EVENT DATE: 20170530
